FAERS Safety Report 15527481 (Version 2)
Quarter: 2018Q4

REPORT INFORMATION
  Report Type: Report from Study
  Country: DE (occurrence: DE)
  Receive Date: 20181020
  Receipt Date: 20181022
  Transmission Date: 20190205
  Serious: Yes (Hospitalization)
  Sender: FDA-Public Use
  Company Number: DE-ACCORD-073380

PATIENT
  Age: 67 Year
  Sex: Male
  Weight: 87 kg

DRUGS (9)
  1. FLUOROURACIL. [Suspect]
     Active Substance: FLUOROURACIL
     Indication: COLORECTAL CANCER
     Dosage: DATE OF LAST DOSE PRIOR TO PROTEINURIA: 15-JUN-2016,
     Route: 042
     Dates: start: 20160323, end: 20160615
  2. FOLINIC ACID [Concomitant]
     Active Substance: LEUCOVORIN
     Indication: COLORECTAL CANCER
     Dosage: DAILY DOSE: 1040 MG MILLGRAM(S) EVERY WEEKS
     Route: 042
     Dates: start: 20160706, end: 20160706
  3. DEXAMETHASONE. [Concomitant]
     Active Substance: DEXAMETHASONE
     Route: 048
     Dates: start: 20160317
  4. OXALIPLATIN. [Suspect]
     Active Substance: OXALIPLATIN
     Indication: COLORECTAL CANCER
     Dosage: DATE OF LAST DOSE PRIOR TO PROTEINURIA: 15-JUN-2016
     Route: 042
     Dates: start: 20160323, end: 20160615
  5. LOPERAMIDE [Concomitant]
     Active Substance: LOPERAMIDE
     Indication: DIARRHOEA
     Route: 048
     Dates: start: 20160622, end: 201606
  6. OMEPRAZOLE. [Concomitant]
     Active Substance: OMEPRAZOLE
     Dosage: DAILY DOSE: 20 MG MILLGRAM(S) EVERY DAYS
     Route: 048
     Dates: start: 2016
  7. AVASTIN [Suspect]
     Active Substance: BEVACIZUMAB
     Indication: COLORECTAL CANCER METASTATIC
     Dosage: DATE OF LAST DOSE PRIOR TO SAE WAS ON 22-JUN-2016 AND DISCONTINUED.
     Route: 042
     Dates: start: 20160420, end: 20160622
  8. PANTOPRAZOLE [Concomitant]
     Active Substance: PANTOPRAZOLE
     Route: 048
     Dates: start: 201706
  9. METOCLOPRAMIDE. [Concomitant]
     Active Substance: METOCLOPRAMIDE
     Dosage: DAILY DOSE: 30 MG MILLGRAM(S) EVERY DAYS
     Route: 048
     Dates: start: 2016

REACTIONS (2)
  - Atrial fibrillation [Recovered/Resolved]
  - Proteinuria [Unknown]

NARRATIVE: CASE EVENT DATE: 20160622
